FAERS Safety Report 9605835 (Version 2)
Quarter: 2013Q4

REPORT INFORMATION
  Report Type: Spontaneous
  Country: US (occurrence: US)
  Receive Date: 20131008
  Receipt Date: 20131008
  Transmission Date: 20140711
  Serious: No
  Sender: FDA-Public Use
  Company Number: US-AMGEN-USASP2013055606

PATIENT
  Age: 49 Year
  Sex: Female
  Weight: 54.88 kg

DRUGS (7)
  1. XGEVA [Suspect]
     Indication: BREAST CANCER METASTATIC
     Dosage: 120 UNK, ONE TIME DOSE
     Route: 058
     Dates: start: 20130722
  2. FEMARA [Concomitant]
     Route: 065
  3. ONDANSETRON [Concomitant]
  4. PREDNISONE [Concomitant]
     Route: 061
  5. FLUTICONE [Concomitant]
     Route: 045
  6. COMPAZINE                          /00013302/ [Concomitant]
     Route: 065
  7. FASLODEX                           /01503001/ [Concomitant]
     Route: 065

REACTIONS (4)
  - Urticaria [Recovered/Resolved]
  - Dermatitis [Unknown]
  - Eczema [Unknown]
  - Drug eruption [Unknown]
